FAERS Safety Report 4759749-3 (Version None)
Quarter: 2005Q3

REPORT INFORMATION
  Report Type: 
  Country: None (occurrence: None)
  Receive Date: 20050826
  Receipt Date: 20050725
  Transmission Date: 20060218
  Serious: No
  Sender: FDA-Public Use
  Company Number: 215346

PATIENT
  Age: 42 Year
  Sex: Male

DRUGS (1)
  1. RAPTIVA [Suspect]
     Indication: PSORIASIS
     Dosage: 1.1 ML
     Dates: start: 20030601

REACTIONS (3)
  - HERPES SIMPLEX [None]
  - RED BLOOD CELL ABNORMALITY [None]
  - WHITE BLOOD CELL DISORDER [None]
